FAERS Safety Report 9927328 (Version 4)
Quarter: 2015Q1

REPORT INFORMATION
  Report Type: Report from Study
  Country: IT (occurrence: IT)
  Receive Date: 20140226
  Receipt Date: 20150228
  Transmission Date: 20150721
  Serious: Yes (Other)
  Sender: FDA-Public Use
  Company Number: PHHY2014IT022116

PATIENT
  Age: 31 Year
  Sex: Female

DRUGS (1)
  1. GILENYA [Suspect]
     Active Substance: FINGOLIMOD HYDROCHLORIDE
     Indication: RELAPSING-REMITTING MULTIPLE SCLEROSIS
     Dosage: 0.5 MG, QD
     Route: 048
     Dates: start: 20131008, end: 20140210

REACTIONS (9)
  - Genital candidiasis [Unknown]
  - Multiple sclerosis relapse [Recovering/Resolving]
  - Glossitis [Not Recovered/Not Resolved]
  - Rash [Unknown]
  - Glossodynia [Recovering/Resolving]
  - Dysphagia [Recovering/Resolving]
  - Papillitis [Recovering/Resolving]
  - Immunodeficiency [Unknown]
  - Sensory disturbance [Recovering/Resolving]

NARRATIVE: CASE EVENT DATE: 20131021
